FAERS Safety Report 9039472 (Version 1)
Quarter: 2013Q1

REPORT INFORMATION
  Report Type: Spontaneous
  Country: US (occurrence: None)
  Receive Date: 20130123
  Receipt Date: 20130123
  Transmission Date: 20140127
  Serious: No
  Sender: FDA-Public Use
  Company Number: None

PATIENT
  Age: 18 Year
  Sex: Male

DRUGS (2)
  1. MINOCYCLINE [Suspect]
     Indication: ACNE
     Dosage: 100 MG BID
     Dates: start: 20110630, end: 20120530
  2. DOXYCYCLINE [Suspect]
     Indication: ACNE
     Dosage: 100 MG BID
     Dates: start: 20120612, end: 20130105

REACTIONS (1)
  - Nausea [None]
